FAERS Safety Report 4308520-5 (Version None)
Quarter: 2004Q1

REPORT INFORMATION
  Report Type: 
  Country: None (occurrence: None)
  Receive Date: 20040226
  Receipt Date: 20040105
  Transmission Date: 20041129
  Serious: Yes (Hospitalization, Other)
  Sender: FDA-Public Use
  Company Number: 2003186193US

PATIENT
  Sex: Male

DRUGS (4)
  1. CELEBREX [Suspect]
     Dosage: 100 MG, BID, ORAL
     Route: 048
     Dates: start: 20031101
  2. ANCEF [Suspect]
     Dosage: 1 G, PREOP,
     Dates: start: 20031101
  3. MORPHINE SULFATE [Suspect]
  4. DESFLURANE (DESFLURANE) [Suspect]

REACTIONS (1)
  - RENAL FAILURE ACUTE [None]
